FAERS Safety Report 10238058 (Version 1)
Quarter: 2014Q2

REPORT INFORMATION
  Report Type: Spontaneous
  Country: US (occurrence: US)
  Receive Date: 20140616
  Receipt Date: 20140616
  Transmission Date: 20141212
  Serious: Yes (Other)
  Sender: FDA-Public Use
  Company Number: US-SHIRE-US201402986

PATIENT
  Age: 14 Year
  Sex: Female

DRUGS (2)
  1. CINRYZE [Suspect]
     Indication: HEREDITARY ANGIOEDEMA
     Dosage: (1500 UNITS), OTHER (EVERY 2 DAYS)
     Route: 042
     Dates: start: 201311
  2. CINRYZE [Suspect]
     Indication: PROPHYLAXIS

REACTIONS (3)
  - Hereditary angioedema [Unknown]
  - Therapy change [Not Recovered/Not Resolved]
  - Inappropriate schedule of drug administration [Not Recovered/Not Resolved]
